FAERS Safety Report 14816768 (Version 6)
Quarter: 2018Q4

REPORT INFORMATION
  Report Type: Spontaneous
  Country: JP (occurrence: JP)
  Receive Date: 20180426
  Receipt Date: 20181126
  Transmission Date: 20190204
  Serious: Yes (Other)
  Sender: FDA-Public Use
  Company Number: JP-JNJFOC-20180426966

PATIENT
  Age: 68 Year
  Sex: Male
  Weight: 78 kg

DRUGS (4)
  1. STELARA [Suspect]
     Active Substance: USTEKINUMAB
     Indication: PSORIASIS
     Route: 058
  2. STELARA [Suspect]
     Active Substance: USTEKINUMAB
     Indication: PSORIASIS
     Route: 058
     Dates: start: 20131218, end: 2015
  3. STELARA [Suspect]
     Active Substance: USTEKINUMAB
     Indication: PSORIASIS
     Route: 058
     Dates: start: 20150402, end: 20180417
  4. ALLELOCK [Concomitant]
     Active Substance: OLOPATADINE HYDROCHLORIDE
     Indication: PRURITUS
     Route: 065
     Dates: start: 20131129

REACTIONS (4)
  - Double stranded DNA antibody positive [Unknown]
  - Interstitial lung disease [Recovering/Resolving]
  - Psoriasis [Recovering/Resolving]
  - DNA antibody positive [Unknown]

NARRATIVE: CASE EVENT DATE: 20180118
